FAERS Safety Report 4314485-2 (Version None)
Quarter: 2004Q1

REPORT INFORMATION
  Report Type: 
  Country: None (occurrence: None)
  Receive Date: 20040309
  Receipt Date: 20040227
  Transmission Date: 20041129
  Serious: Yes (Hospitalization)
  Sender: FDA-Public Use
  Company Number: PHRM2004FR01004

PATIENT
  Age: 73 Year
  Sex: Female

DRUGS (5)
  1. NITROGLYCERIN [Suspect]
     Dosage: 10 MG, QD
     Route: 062
     Dates: start: 20010101
  2. HYPERIUM [Suspect]
     Dosage: 1 MG, BID
     Route: 048
     Dates: start: 20010101
  3. LASILIX [Suspect]
     Dosage: 1 DF, QD
     Route: 048
     Dates: start: 19990601
  4. ASPIRIN [Suspect]
     Dosage: 75 MG, QD
     Route: 048
     Dates: start: 19991101
  5. MONO-TILDIEM - SLOW RELEASE [Suspect]
     Dosage: 200 MG, QD
     Route: 048
     Dates: start: 20010101

REACTIONS (1)
  - RENAL FAILURE [None]
